FAERS Safety Report 5165112-6 (Version None)
Quarter: 2006Q4

REPORT INFORMATION
  Report Type: 
  Country: None (occurrence: None)
  Receive Date: 20061127
  Receipt Date: 20061024
  Transmission Date: 20070319
  Serious: Yes (Death)
  Sender: FDA-Public Use
  Company Number: AND_AAPCC_2006_0741

PATIENT
  Age: 74 Year

DRUGS (3)
  1. MIRTAZAPINE [Suspect]
  2. DESIPRAMINE HCL [Suspect]
  3. CLONAZEPAM [Suspect]
     Dosage: DF, UNK 047

REACTIONS (1)
  - COMPLETED SUICIDE [None]
